FAERS Safety Report 10355879 (Version 4)
Quarter: 2017Q1

REPORT INFORMATION
  Report Type: Report from Study
  Country: US (occurrence: US)
  Receive Date: 20140801
  Receipt Date: 20170206
  Transmission Date: 20170428
  Serious: Yes (Hospitalization)
  Sender: FDA-Public Use
  Company Number: US-ROCHE-1401802

PATIENT
  Age: 37 Year
  Sex: Male
  Weight: 86.26 kg

DRUGS (37)
  1. PREDNISONE. [Suspect]
     Active Substance: PREDNISONE
     Indication: PRODUCT USED FOR UNKNOWN INDICATION
     Route: 048
  2. ALBUTEROL. [Concomitant]
     Active Substance: ALBUTEROL
  3. AUGMENTIN [Concomitant]
     Active Substance: AMOXICILLIN\CLAVULANATE POTASSIUM
     Dosage: 875-125 MG EVERY 12 HOURS X 10 DAYS
     Route: 048
  4. ZITHROMAX [Concomitant]
     Active Substance: AZITHROMYCIN DIHYDRATE
     Dosage: 3 TABLETS IN MORNING WITH FOOD FOR 3 DAYS THEN 2 TABLETS FOR 3 DAYS, THEN 1 TABLET FOR 3 DAYS, THEN
     Route: 048
  5. SYMBICORT [Concomitant]
     Active Substance: BUDESONIDE\FORMOTEROL FUMARATE DIHYDRATE
     Route: 065
  6. PATANASE [Concomitant]
     Active Substance: OLOPATADINE HYDROCHLORIDE
     Dosage: SPRAY NON AEROSOL 10TO 2 SPRAYS PER NOSTRIL ONCE TO TWICE DAILY
     Route: 065
  7. VENTOLIN [Concomitant]
     Active Substance: ALBUTEROL SULFATE
  8. EPIPEN [Concomitant]
     Active Substance: EPINEPHRINE
     Dosage: PER ALLERGIC EMERGENCY
     Route: 030
  9. ADVAIR HFA [Concomitant]
     Active Substance: FLUTICASONE PROPIONATE\SALMETEROL XINAFOATE
     Dosage: 250-50 MCG/DOSE 2 PUFFS DAILY
     Route: 065
  10. ROCEPHIN [Concomitant]
     Active Substance: CEFTRIAXONE SODIUM
     Route: 065
  11. XOLAIR [Suspect]
     Active Substance: OMALIZUMAB
     Dosage: Q2WEEK/Q4 WEEK
     Route: 058
  12. ASTELIN (UNITED STATES) [Concomitant]
  13. CLARITIN (UNITED STATES) [Concomitant]
  14. FLONASE (UNITED STATES) [Concomitant]
     Dosage: 50 MCG/ACTUATION SPRAY, SUSPENSION ..2 SPRAY PER NOSTRIL ONCE TO TWICE DAILY
     Route: 065
  15. TOBRAMYCIN. [Concomitant]
     Active Substance: TOBRAMYCIN
  16. XOLAIR [Suspect]
     Active Substance: OMALIZUMAB
     Route: 058
  17. PROVENTIL [Concomitant]
     Active Substance: ALBUTEROL
  18. SYMBICORT [Concomitant]
     Active Substance: BUDESONIDE\FORMOTEROL FUMARATE DIHYDRATE
     Route: 065
  19. PROAIR HFA [Concomitant]
     Active Substance: ALBUTEROL SULFATE
     Dosage: INHALER MCG/ACTUATION: 1-2 PUFF EVERY 4 TO 6 HOURS AS PER NEED FOR ASTHMA SYMTOMS.
     Route: 065
  20. ZYRTEC [Concomitant]
     Active Substance: CETIRIZINE HYDROCHLORIDE
     Route: 065
  21. FLUTICASONE PROPIONATE. [Concomitant]
     Active Substance: FLUTICASONE PROPIONATE
     Dosage: ACTUTATION SPRAY, SUSPENSION
     Route: 045
  22. ADVAIR HFA [Concomitant]
     Active Substance: FLUTICASONE PROPIONATE\SALMETEROL XINAFOATE
     Dosage: INHALER
     Route: 065
  23. ENTEX LA [Concomitant]
     Active Substance: GUAIFENESIN\PHENYLEPHRINE HYDROCHLORIDE
  24. XOLAIR [Suspect]
     Active Substance: OMALIZUMAB
     Indication: ASTHMA
     Route: 058
  25. RHINOCORT (UNITED STATES) [Concomitant]
  26. ZITHROMAX [Concomitant]
     Active Substance: AZITHROMYCIN DIHYDRATE
     Route: 048
  27. ZITHROMAX [Concomitant]
     Active Substance: AZITHROMYCIN DIHYDRATE
     Dosage: 2 TABLETS BY DAY 1 THEN 1 TABLET FOR 10 DAYS
     Route: 048
  28. ZITHROMAX [Concomitant]
     Active Substance: AZITHROMYCIN DIHYDRATE
     Route: 048
  29. PATANASE [Concomitant]
     Active Substance: OLOPATADINE HYDROCHLORIDE
  30. AZITHROMYCIN ANHYDROUS. [Concomitant]
     Active Substance: AZITHROMYCIN ANHYDROUS
     Dosage: 2 TABLETS DAY 1 THEN 1 TABLET FOR 14 DAYS
     Route: 048
  31. AZITHROMYCIN ANHYDROUS. [Concomitant]
     Active Substance: AZITHROMYCIN ANHYDROUS
     Dosage: 2 TABLETS DAY 1 THEN 1 TABLET DAILY  FOR X 10
     Route: 048
  32. SINGULAIR [Concomitant]
     Active Substance: MONTELUKAST SODIUM
     Dosage: 1 TABLET EVERY DAY
     Route: 065
  33. XOPENEX HFA [Concomitant]
     Active Substance: LEVALBUTEROL TARTRATE
     Dosage: 2 INHALATIONS BY MOUTH EVERY 4-6 HOURS
     Route: 065
  34. ADVAIR HFA [Concomitant]
     Active Substance: FLUTICASONE PROPIONATE\SALMETEROL XINAFOATE
     Dosage: 500-50 MCG/DOSE DISK WITH DEVICE 1 INHALATION BY MOUTH EVERY 12 HOURS
     Route: 065
  35. EPIPEN [Concomitant]
     Active Substance: EPINEPHRINE
     Dosage: AUTO INJECTOR. 0.3 MG/0.3 ML
     Route: 065
  36. AZITHROMYCIN ANHYDROUS. [Concomitant]
     Active Substance: AZITHROMYCIN ANHYDROUS
     Dosage: 2 TABLETS TODAY 1 THEN 1 TABLET DAILY  FOR 9 MORE DAYS
     Route: 048
  37. SOLU-MEDROL [Concomitant]
     Active Substance: METHYLPREDNISOLONE SODIUM SUCCINATE
     Route: 030

REACTIONS (15)
  - Rhinitis [Unknown]
  - Headache [Unknown]
  - Eye pain [Unknown]
  - Hypersensitivity [Unknown]
  - Anaphylactic reaction [Unknown]
  - Nasal polyps [Unknown]
  - Insomnia [Unknown]
  - Myalgia [Unknown]
  - Back injury [Unknown]
  - Dysphonia [Unknown]
  - Toothache [Unknown]
  - Nasal discharge discolouration [Unknown]
  - Asthma [Unknown]
  - Lethargy [Unknown]
  - Nasal congestion [Unknown]

NARRATIVE: CASE EVENT DATE: 20080515
